FAERS Safety Report 4600880-0 (Version None)
Quarter: 2005Q1

REPORT INFORMATION
  Report Type: 
  Country: None (occurrence: None)
  Receive Date: 20050127
  Receipt Date: 20041020
  Transmission Date: 20050727
  Serious: No
  Sender: FDA-Public Use
  Company Number: USA041081711

PATIENT
  Age: 34 Year
  Sex: Male
  Weight: 91 kg

DRUGS (2)
  1. STRATTERA [Suspect]
     Indication: ATTENTION DEFICIT/HYPERACTIVITY DISORDER
     Dosage: 40 MG DAY
     Dates: start: 20040921
  2. LIPITOR [Concomitant]

REACTIONS (5)
  - DYSURIA [None]
  - ERECTILE DYSFUNCTION [None]
  - FEELING ABNORMAL [None]
  - LETHARGY [None]
  - URINARY RETENTION [None]
